FAERS Safety Report 21939043 (Version 1)
Quarter: 2023Q1

REPORT INFORMATION
  Report Type: Spontaneous
  Country: JP (occurrence: JP)
  Receive Date: 20230201
  Receipt Date: 20230201
  Transmission Date: 20230418
  Serious: Yes (Other)
  Sender: FDA-Public Use
  Company Number: JP-TAKEDA-2022TJP065817

PATIENT
  Age: 85 Year
  Sex: Male

DRUGS (1)
  1. CABOMETYX [Suspect]
     Active Substance: CABOZANTINIB S-MALATE
     Indication: Renal cancer
     Dosage: 20 MG
     Route: 048
     Dates: start: 20220219

REACTIONS (8)
  - Hypothyroidism [Unknown]
  - Renal cancer [Unknown]
  - Disease progression [Unknown]
  - Hypertension [Recovered/Resolved]
  - Diarrhoea [Unknown]
  - Platelet count decreased [Unknown]
  - Fatigue [Unknown]
  - Palmar-plantar erythrodysaesthesia syndrome [Unknown]
